FAERS Safety Report 5464329-0 (Version None)
Quarter: 2007Q3

REPORT INFORMATION
  Report Type: 
  Country: None (occurrence: None)
  Receive Date: 20070921
  Receipt Date: 20070912
  Transmission Date: 20080115
  Serious: Yes (Hospitalization)
  Sender: FDA-Public Use
  Company Number: US-ELI_LILLY_AND_COMPANY-US200709002374

PATIENT
  Sex: Female

DRUGS (2)
  1. HUMALOG MIX 75/25 [Suspect]
     Indication: DIABETES MELLITUS
     Dosage: 40 U, EACH MORNING
  2. HUMALOG MIX 75/25 [Suspect]
     Dosage: 25 U, EACH EVENING

REACTIONS (3)
  - BLOOD GLUCOSE FLUCTUATION [None]
  - HIP FRACTURE [None]
  - MEDICAL DEVICE REMOVAL [None]
